FAERS Safety Report 12283933 (Version 1)
Quarter: 2016Q2

REPORT INFORMATION
  Report Type: Spontaneous
  Country: US (occurrence: US)
  Receive Date: 20160419
  Receipt Date: 20160419
  Transmission Date: 20160815
  Serious: No
  Sender: FDA-Public Use
  Company Number: US-BANPHARM-20164603

PATIENT
  Age: 14 Year
  Sex: Male
  Weight: 68.04 kg

DRUGS (2)
  1. ASMANEX [Concomitant]
     Active Substance: MOMETASONE FUROATE
     Indication: ORAL PAIN
  2. ALEVE [Suspect]
     Active Substance: NAPROXEN SODIUM
     Dosage: 1 DF, ONCE,
     Route: 048
     Dates: start: 20160114, end: 20160114

REACTIONS (2)
  - Drug ineffective [Recovered/Resolved]
  - Expired product administered [Recovered/Resolved]

NARRATIVE: CASE EVENT DATE: 20160114
